FAERS Safety Report 18839097 (Version 1)
Quarter: 2021Q1

REPORT INFORMATION
  Report Type: Spontaneous
  Country: JP (occurrence: JP)
  Receive Date: 20210203
  Receipt Date: 20210203
  Transmission Date: 20210419
  Serious: Yes (Life-Threatening, Hospitalization, Other)
  Sender: FDA-Public Use
  Company Number: JP-009507513-2102JPN000069

PATIENT
  Age: 83 Year
  Sex: Female

DRUGS (22)
  1. SENNOSIDES. [Concomitant]
     Active Substance: SENNOSIDES
     Indication: CONSTIPATION
     Dosage: UNK
     Route: 048
  2. MARZULENE?S [Concomitant]
     Active Substance: GLUTAMINE\SODIUM GUALENATE
     Dosage: UNK
     Route: 048
  3. LOXONIN [Concomitant]
     Active Substance: LOXOPROFEN SODIUM
     Indication: HEADACHE
     Dosage: 1 DF, EVERYDAY
     Route: 048
     Dates: start: 20131128, end: 20131128
  4. LIVALO [Concomitant]
     Active Substance: PITAVASTATIN CALCIUM
     Indication: HYPERCHOLESTEROLAEMIA
     Dosage: 1 MG, EVERYDAY
     Route: 048
  5. MICARDIS [Concomitant]
     Active Substance: TELMISARTAN
     Indication: HYPERTENSION
     Dosage: 40 MG, EVERYDAY
     Route: 048
  6. BAYASPIRIN [Concomitant]
     Active Substance: ASPIRIN
     Indication: ANTIPLATELET THERAPY
     Dosage: 100 MG, EVERYDAY
     Route: 048
  7. AMARYL [Suspect]
     Active Substance: GLIMEPIRIDE
     Indication: DIABETES MELLITUS
     Dosage: 1 MG, EVERYDAY
     Route: 048
  8. PARIET [Concomitant]
     Active Substance: RABEPRAZOLE SODIUM
     Dosage: 10 MG, EVERYDAY
     Route: 048
  9. ZOVIRAX [Concomitant]
     Active Substance: ACYCLOVIR
     Dosage: UNK
     Route: 047
  10. LENDORMIN [Concomitant]
     Active Substance: BROTIZOLAM
     Dosage: UNK
     Route: 048
  11. ARTIST [Concomitant]
     Active Substance: CARVEDILOL
     Indication: HYPERTENSION
     Dosage: 2.5 MG, EVERYDAY
     Route: 048
  12. OSTELUC [Concomitant]
     Active Substance: ETODOLAC
     Indication: POST HERPETIC NEURALGIA
     Dosage: 400 MG, EVERYDAY
     Route: 048
     Dates: start: 20131210, end: 20131217
  13. LYRICA [Suspect]
     Active Substance: PREGABALIN
     Indication: POST HERPETIC NEURALGIA
     Dosage: 25 MG, EVERYDAY
     Route: 048
     Dates: start: 20131217, end: 20131218
  14. LOXONIN [Concomitant]
     Active Substance: LOXOPROFEN SODIUM
     Indication: POST HERPETIC NEURALGIA
     Dosage: 120 MG
     Route: 048
     Dates: start: 20131129, end: 20131210
  15. ARASENA?A [Concomitant]
     Active Substance: VIDARABINE
     Dosage: UNK
     Route: 061
  16. FAMVIR [Concomitant]
     Active Substance: FAMCICLOVIR
     Indication: POST HERPETIC NEURALGIA
     Dosage: 250 MG, EVERYDAY
     Route: 048
     Dates: start: 20131203, end: 20131210
  17. VOLTAREN [Concomitant]
     Active Substance: DICLOFENAC SODIUM
     Indication: POST HERPETIC NEURALGIA
     Dosage: 50 MG, EVERYDAY
     Route: 048
     Dates: start: 20131217
  18. GLACTIV [Suspect]
     Active Substance: SITAGLIPTIN
     Indication: TYPE 2 DIABETES MELLITUS
     Dosage: 25 MG, EVERYDAY
     Route: 048
  19. SELBEX [Concomitant]
     Active Substance: TEPRENONE
     Dosage: UNK
     Route: 048
  20. LASIX [Concomitant]
     Active Substance: FUROSEMIDE
     Indication: POLYURIA
     Dosage: 20 MG, EVERYDAY
     Route: 048
  21. CEROCRAL [Concomitant]
     Active Substance: IFENPRODIL
     Dosage: 180 MG, EVERYDAY
     Route: 048
  22. BROTIZOLAM [Concomitant]
     Active Substance: BROTIZOLAM
     Indication: INSOMNIA
     Dosage: 0.25 MG, EVERYDAY
     Route: 048

REACTIONS (5)
  - Hypoglycaemic coma [Unknown]
  - Pneumonia aspiration [Unknown]
  - Hypoglycaemia [Recovered/Resolved]
  - Feeling abnormal [Unknown]
  - Somnolence [Unknown]

NARRATIVE: CASE EVENT DATE: 201312
